FAERS Safety Report 18301447 (Version 1)
Quarter: 2020Q3

REPORT INFORMATION
  Report Type: Spontaneous
  Country: US (occurrence: US)
  Receive Date: 20200923
  Receipt Date: 20200923
  Transmission Date: 20201103
  Serious: Yes (Hospitalization)
  Sender: FDA-Public Use
  Company Number: None

PATIENT
  Age: 83 Year
  Sex: Male

DRUGS (1)
  1. APIXABAN (APIXABAN 2.5MG TAB, UD) [Suspect]
     Active Substance: APIXABAN
     Indication: ATRIAL FIBRILLATION
     Dates: end: 20200426

REACTIONS (3)
  - Upper gastrointestinal haemorrhage [None]
  - Anaemia [None]
  - Diverticulum [None]

NARRATIVE: CASE EVENT DATE: 20200426
